FAERS Safety Report 18013878 (Version 3)
Quarter: 2022Q3

REPORT INFORMATION
  Report Type: Spontaneous
  Country: FR (occurrence: FR)
  Receive Date: 20200713
  Receipt Date: 20220714
  Transmission Date: 20221027
  Serious: Yes (Hospitalization, Other)
  Sender: FDA-Public Use
  Company Number: None

PATIENT

DRUGS (19)
  1. AMOXICILLIN [Suspect]
     Active Substance: AMOXICILLIN
     Indication: Product used for unknown indication
     Dosage: 3 G, QD
     Route: 048
     Dates: start: 20200311, end: 20200325
  2. LEVOFLOXACIN [Suspect]
     Active Substance: LEVOFLOXACIN
     Indication: Product used for unknown indication
     Dosage: 500 MG, QD
     Route: 048
     Dates: start: 20200311, end: 20200325
  3. SERETIDE [Suspect]
     Active Substance: FLUTICASONE PROPIONATE\SALMETEROL XINAFOATE
     Indication: Product used for unknown indication
     Dosage: 1000 ?G, QD
     Route: 055
     Dates: start: 20200515
  4. MUPIROCIN [Suspect]
     Active Substance: MUPIROCIN
     Indication: Product used for unknown indication
     Dosage: UNK
     Route: 045
     Dates: start: 20200519, end: 20200526
  5. ACETAMINOPHEN [Suspect]
     Active Substance: ACETAMINOPHEN
     Indication: Pain
     Dosage: 3 G, QD
     Route: 048
     Dates: start: 20200307, end: 20200328
  6. OXAZEPAM [Suspect]
     Active Substance: OXAZEPAM
     Indication: Anxiety
     Dosage: 20 MG, QD
     Route: 048
     Dates: end: 20200621
  7. ESOMEPRAZOLE [Suspect]
     Active Substance: ESOMEPRAZOLE
     Indication: Product used for unknown indication
     Dosage: 20 MG, QD
     Route: 048
     Dates: start: 20200602, end: 20200621
  8. EBASTINE [Suspect]
     Active Substance: EBASTINE
     Indication: Hypersensitivity
     Dosage: 20 MG, QD
     Route: 048
     Dates: start: 20200504, end: 20200518
  9. FUSIDIC ACID [Suspect]
     Active Substance: FUSIDIC ACID
     Indication: Product used for unknown indication
     Dosage: 2 DF, QD
     Route: 003
     Dates: start: 20200602, end: 20200621
  10. CLAVULANIC ACID [Suspect]
     Active Substance: CLAVULANIC ACID
     Indication: Product used for unknown indication
     Dosage: 375 MG, QD
     Route: 048
     Dates: start: 20200311, end: 20200325
  11. AZITHROMYCIN [Suspect]
     Active Substance: AZITHROMYCIN
     Indication: Product used for unknown indication
     Dosage: 250 MG, QD
     Route: 048
     Dates: start: 20200316, end: 20200326
  12. TAMIFLU [Suspect]
     Active Substance: OSELTAMIVIR PHOSPHATE
     Indication: Influenza
     Dosage: 150 MG, QD
     Route: 048
     Dates: start: 20200307, end: 20200312
  13. NAPHAZOLINE NITRATE\PREDNISOLONE [Suspect]
     Active Substance: NAPHAZOLINE NITRATE\PREDNISOLONE
     Indication: Product used for unknown indication
     Dosage: 4 DF, QD
     Route: 045
     Dates: start: 20200316, end: 20200321
  14. SYMBICORT [Suspect]
     Active Substance: BUDESONIDE\FORMOTEROL FUMARATE DIHYDRATE
     Indication: Product used for unknown indication
     Dosage: 4 DF, QD
     Route: 055
     Dates: start: 20200311
  15. NAPHAZOLINE NITRATE\PREDNISOLONE [Suspect]
     Active Substance: NAPHAZOLINE NITRATE\PREDNISOLONE
     Dosage: 4 DF, 1X/DAY
     Route: 045
     Dates: start: 20200316, end: 20200321
  16. SYMBICORT [Suspect]
     Active Substance: BUDESONIDE\FORMOTEROL FUMARATE DIHYDRATE
     Dosage: 4 DF, 1X/DAY
     Route: 055
     Dates: start: 20200311
  17. MUPIROCIN [Suspect]
     Active Substance: MUPIROCIN
     Dosage: UNK
     Route: 045
     Dates: start: 20200519, end: 20200526
  18. ACETAMINOPHEN [Suspect]
     Active Substance: ACETAMINOPHEN
     Indication: Pain
     Dosage: 3 G, 1X/DAY
     Route: 048
     Dates: start: 20200307, end: 20200328
  19. ESOMEPRAZOLE MAGNESIUM [Suspect]
     Active Substance: ESOMEPRAZOLE MAGNESIUM
     Dosage: 20 MG, 1X/DAY
     Route: 048
     Dates: start: 20200602, end: 20200621

REACTIONS (1)
  - Pancreatitis acute [Recovered/Resolved]

NARRATIVE: CASE EVENT DATE: 20200620
